FAERS Safety Report 6848608-8 (Version None)
Quarter: 2010Q3

REPORT INFORMATION
  Report Type: 
  Country: None (occurrence: None)
  Receive Date: 20100716
  Receipt Date: 20100706
  Transmission Date: 20110219
  Serious: Yes (Other)
  Sender: FDA-Public Use
  Company Number: US-PFIZER INC-2010084587

PATIENT
  Age: 58 Year
  Sex: Male

DRUGS (1)
  1. VIAGRA [Suspect]

REACTIONS (1)
  - BLINDNESS TRANSIENT [None]
